FAERS Safety Report 8561447 (Version 4)
Quarter: 2012Q4

REPORT INFORMATION
  Report Type: 
  Country: US (occurrence: US)
  Receive Date: 20120515
  Receipt Date: 20120902
  Transmission Date: 20130627
  Serious: Yes (Other)
  Sender: FDA-Public Use
  Company Number: US-AMGEN-USASP2012029580

PATIENT
  Age: 56 Year
  Sex: Male

DRUGS (8)
  1. NPLATE [Suspect]
     Indication: IDIOPATHIC THROMBOCYTOPENIC PURPURA
     Dosage: 5 mug/kg, UNK
     Dates: start: 20120329
  2. EFAVIRENZ [Concomitant]
  3. LAMIVUDINE [Concomitant]
  4. ZIDOVUDINE [Concomitant]
  5. FOLIC ACID [Concomitant]
  6. IRON [Concomitant]
  7. COLACE [Concomitant]
  8. TYLENOL /00020001/ [Concomitant]

REACTIONS (2)
  - Therapeutic response decreased [Not Recovered/Not Resolved]
  - Antibody test positive [Unknown]
